FAERS Safety Report 16752357 (Version 1)
Quarter: 2019Q3

REPORT INFORMATION
  Report Type: Spontaneous
  Country: CN (occurrence: CN)
  Receive Date: 20190828
  Receipt Date: 20190828
  Transmission Date: 20191005
  Serious: Yes (Hospitalization, Other)
  Sender: FDA-Public Use
  Company Number: PHHY2019CN194449

PATIENT
  Sex: Male

DRUGS (1)
  1. ZYKADIA [Suspect]
     Active Substance: CERITINIB
     Indication: LUNG ADENOCARCINOMA
     Dosage: UNK
     Route: 048
     Dates: start: 20190814

REACTIONS (6)
  - Pain in extremity [Unknown]
  - Carcinoembryonic antigen increased [Unknown]
  - Pleural effusion [Unknown]
  - Musculoskeletal pain [Unknown]
  - Metastases to bone [Unknown]
  - Metastases to pleura [Unknown]
